FAERS Safety Report 8804612 (Version 1)
Quarter: 2012Q4

REPORT INFORMATION
  Report Type: 
  Country: AT (occurrence: AT)
  Receive Date: 20120924
  Receipt Date: 20120924
  Transmission Date: 20130627
  Serious: Yes (Life-Threatening, Hospitalization, Disabling)
  Sender: FDA-Public Use
  Company Number: AT-ABBOTT-12P-009-0978422-00

PATIENT
  Age: 67 Year
  Sex: Male

DRUGS (6)
  1. TANDEMACT [Suspect]
     Indication: TYPE 2 DIABETES MELLITUS
     Dosage: 30mg/4mg
     Route: 048
     Dates: start: 20101020, end: 20120330
  2. COMPETACT [Suspect]
     Indication: TYPE 2 DIABETES MELLITUS
     Dosage: 15/850 MG
     Route: 048
  3. NEBIVOLOL HYDROCHLORIDE [Concomitant]
     Indication: PRODUCT USED FOR UNKNOWN INDICATION
  4. QUINAPRIL HYDROCHLORIDE [Concomitant]
     Indication: PRODUCT USED FOR UNKNOWN INDICATION
  5. GEZOR [Concomitant]
     Indication: PRODUCT USED FOR UNKNOWN INDICATION
  6. SIMVASTATIN [Concomitant]
     Indication: PRODUCT USED FOR UNKNOWN INDICATION

REACTIONS (2)
  - Bladder cancer [Unknown]
  - Drug intolerance [Unknown]
